FAERS Safety Report 4264682-X (Version None)
Quarter: 2004Q1

REPORT INFORMATION
  Report Type: 
  Country: None (occurrence: None)
  Receive Date: 20040105
  Receipt Date: 20031217
  Transmission Date: 20041129
  Serious: Yes (Hospitalization)
  Sender: FDA-Public Use
  Company Number: STA-AE-03-MTX-191

PATIENT
  Age: 55 Year
  Sex: Female

DRUGS (1)
  1. METHOTREXATE [Suspect]
     Indication: RHEUMATOID ARTHRITIS
     Dosage: 10 MG 1X PER 1 WEEK, ORAL
     Route: 048
     Dates: start: 19910101, end: 19960101

REACTIONS (3)
  - CYTOMEGALOVIRUS INFECTION [None]
  - IMPAIRED HEALING [None]
  - POST PROCEDURAL COMPLICATION [None]
